FAERS Safety Report 6216268-5 (Version None)
Quarter: 2009Q2

REPORT INFORMATION
  Report Type: 
  Country: None (occurrence: None)
  Receive Date: 20090605
  Receipt Date: 20090528
  Transmission Date: 20091009
  Serious: Yes (Other)
  Sender: FDA-Public Use
  Company Number: B0576087A

PATIENT
  Age: 36 Year
  Sex: Female

DRUGS (3)
  1. BUPROPION HCL [Suspect]
     Route: 065
  2. CLONAZEPAM [Concomitant]
  3. LITHIUM [Concomitant]
     Dosage: 900MG PER DAY

REACTIONS (7)
  - AGGRESSION [None]
  - COGNITIVE DISORDER [None]
  - DELUSION [None]
  - FEAR [None]
  - PSYCHOTIC DISORDER [None]
  - SLEEP DISORDER [None]
  - SOLILOQUY [None]
